FAERS Safety Report 25660078 (Version 2)
Quarter: 2025Q3

REPORT INFORMATION
  Report Type: Spontaneous
  Country: CA (occurrence: CA)
  Receive Date: 20250808
  Receipt Date: 20250815
  Transmission Date: 20251021
  Serious: No
  Sender: PFIZER
  Company Number: CA-PFIZER INC-202500094391

PATIENT
  Age: 71 Year
  Sex: Male
  Weight: 130.9 kg

DRUGS (10)
  1. IXIFI [Suspect]
     Active Substance: INFLIXIMAB-QBTX
     Indication: Colitis ulcerative
     Route: 042
     Dates: start: 20250515
  2. IXIFI [Suspect]
     Active Substance: INFLIXIMAB-QBTX
     Route: 042
     Dates: start: 20250623
  3. ATORVASTATIN [Concomitant]
     Active Substance: ATORVASTATIN
  4. APIXABAN [Concomitant]
     Active Substance: APIXABAN
  5. CANDESARTAN [Concomitant]
     Active Substance: CANDESARTAN
  6. FERAMAX [Concomitant]
     Active Substance: IRON\POLYSACCHARIDES
  7. HYDROCHLOROTHIAZIDE [Concomitant]
     Active Substance: HYDROCHLOROTHIAZIDE
  8. METOPROLOL [Concomitant]
     Active Substance: METOPROLOL
  9. METFORMIN [Concomitant]
     Active Substance: METFORMIN HYDROCHLORIDE
  10. RABEPRAZOLE [Concomitant]
     Active Substance: RABEPRAZOLE

REACTIONS (3)
  - Haematuria [Unknown]
  - Urinary tract infection [Unknown]
  - Off label use [Unknown]
